FAERS Safety Report 15689665 (Version 1)
Quarter: 2018Q4

REPORT INFORMATION
  Report Type: Spontaneous
  Country: US (occurrence: US)
  Receive Date: 20181205
  Receipt Date: 20181205
  Transmission Date: 20190205
  Serious: Yes (Other)
  Sender: FDA-Public Use
  Company Number: US-NOVOPROD-573879

PATIENT
  Age: 66 Year
  Sex: Female
  Weight: 92.52 kg

DRUGS (5)
  1. NOVOLIN R [Suspect]
     Active Substance: INSULIN HUMAN
     Dosage: DOSE DECREASED
     Route: 058
  2. KEPPRA [Concomitant]
     Active Substance: LEVETIRACETAM
     Indication: EPILEPSY
  3. NOVOLIN R [Suspect]
     Active Substance: INSULIN HUMAN
     Indication: TYPE 2 DIABETES MELLITUS
     Dosage: UNK UNK, TID
     Route: 058
     Dates: start: 2013
  4. GLIPIZIDE. [Concomitant]
     Active Substance: GLIPIZIDE
     Indication: TYPE 2 DIABETES MELLITUS
  5. METFORMIN [Concomitant]
     Active Substance: METFORMIN HYDROCHLORIDE
     Indication: TYPE 2 DIABETES MELLITUS

REACTIONS (5)
  - Blood glucose fluctuation [Recovered/Resolved]
  - Glycosylated haemoglobin increased [Unknown]
  - Product storage error [Unknown]
  - Hypoglycaemic unconsciousness [Recovered/Resolved]
  - Hypoglycaemia unawareness [Recovered/Resolved]

NARRATIVE: CASE EVENT DATE: 2013
